FAERS Safety Report 9284311 (Version 1)
Quarter: 2013Q2

REPORT INFORMATION
  Report Type: Spontaneous
  Country: US (occurrence: US)
  Receive Date: 20130510
  Receipt Date: 20130510
  Transmission Date: 20140414
  Serious: Yes (Other)
  Sender: FDA-Public Use
  Company Number: US-PFIZER INC-2013143378

PATIENT
  Age: 67 Year
  Sex: Female
  Weight: 81 kg

DRUGS (13)
  1. VENLAFAXINE HCL [Suspect]
     Indication: DEPRESSION
     Dosage: UNK
  2. TRAZODONE [Concomitant]
     Dosage: UNK
  3. COZAAR [Concomitant]
     Dosage: UNK
  4. AMLODIPINE [Concomitant]
     Dosage: UNK
  5. LOSARTAN [Concomitant]
     Dosage: 100 MG, UNK
  6. FOLIC ACID [Concomitant]
     Dosage: UNK
  7. NEXIUM [Concomitant]
     Dosage: UNK
  8. DETROL LA [Concomitant]
     Dosage: UNK
  9. MELOXICAM [Concomitant]
     Dosage: UNK
  10. LEVOTHYROXINE [Concomitant]
     Indication: THYROID DISORDER
     Dosage: UNK
  11. BYSTOLIC [Concomitant]
     Dosage: UNK
  12. POTASSIUM [Concomitant]
     Dosage: UNK
  13. FUROSEMIDE [Concomitant]
     Dosage: UNK

REACTIONS (2)
  - Convulsion [Unknown]
  - Drug ineffective [Unknown]
